FAERS Safety Report 25649979 (Version 1)
Quarter: 2025Q3

REPORT INFORMATION
  Report Type: Spontaneous
  Country: US (occurrence: US)
  Receive Date: 20250806
  Receipt Date: 20250806
  Transmission Date: 20251020
  Serious: No
  Sender: GLENMARK
  Company Number: US-GLENMARK PHARMACEUTICALS-2025GMK100091

PATIENT

DRUGS (1)
  1. SAXAGLIPTIN [Suspect]
     Active Substance: SAXAGLIPTIN
     Indication: Product used for unknown indication
     Route: 065

REACTIONS (2)
  - Product use issue [Unknown]
  - Product packaging quantity issue [Unknown]
